FAERS Safety Report 4994127-3 (Version None)
Quarter: 2006Q2

REPORT INFORMATION
  Report Type: 
  Country: None (occurrence: None)
  Receive Date: 20060505
  Receipt Date: 20060426
  Transmission Date: 20061013
  Serious: Yes (Other)
  Sender: FDA-Public Use
  Company Number: FR-SANOFI-SYNTHELABO-A02200601104

PATIENT
  Age: 53 Year
  Sex: Male

DRUGS (1)
  1. STILNOX [Suspect]
     Indication: DRUG ABUSER
     Dosage: 280 MG
     Route: 065
     Dates: start: 20020101, end: 20050101

REACTIONS (4)
  - ANTEROGRADE AMNESIA [None]
  - DRUG ABUSER [None]
  - OVERDOSE [None]
  - SEXUAL ABUSE [None]
